FAERS Safety Report 11399307 (Version 1)
Quarter: 2015Q3

REPORT INFORMATION
  Report Type: Report from Study
  Country: CO (occurrence: CO)
  Receive Date: 20150820
  Receipt Date: 20150820
  Transmission Date: 20151125
  Serious: Yes (Other)
  Sender: FDA-Public Use
  Company Number: CO-ABBVIE-15K-036-1448013-00

PATIENT
  Age: 63 Year
  Sex: Female
  Weight: 160 kg

DRUGS (1)
  1. HUMIRA [Suspect]
     Active Substance: ADALIMUMAB
     Indication: RHEUMATOID ARTHRITIS
     Route: 058
     Dates: start: 20100302

REACTIONS (6)
  - Biopsy breast [Unknown]
  - Pyrexia [Recovering/Resolving]
  - Viral infection [Recovering/Resolving]
  - Productive cough [Recovering/Resolving]
  - Diarrhoea [Recovering/Resolving]
  - Influenza [Unknown]

NARRATIVE: CASE EVENT DATE: 20150810
